FAERS Safety Report 6875286-4 (Version None)
Quarter: 2010Q3

REPORT INFORMATION
  Report Type: 
  Country: None (occurrence: None)
  Receive Date: 20100727
  Receipt Date: 20100715
  Transmission Date: 20110219
  Serious: Yes (Other)
  Sender: FDA-Public Use
  Company Number: US-JNJFOC-20100510332

PATIENT
  Sex: Female
  Weight: 71.67 kg

DRUGS (23)
  1. REMICADE [Suspect]
     Indication: RHEUMATOID ARTHRITIS
     Route: 042
  2. METHOTREXATE [Concomitant]
  3. FOLIC ACID [Concomitant]
  4. TRAMADOL HYDROCHLORIDE [Concomitant]
  5. CLONIDINE [Concomitant]
  6. ALLOPURINOL [Concomitant]
  7. BENICAR [Concomitant]
  8. DIVALPROEX SODIUM [Concomitant]
  9. GLUCOTROL XL [Concomitant]
  10. OXYBUTIN [Concomitant]
  11. NAMENDA [Concomitant]
  12. RANEXA [Concomitant]
  13. ASPIRIN [Concomitant]
  14. VYTORIN [Concomitant]
  15. HUMALOG [Concomitant]
  16. LANTUS [Concomitant]
  17. ATENOLOL [Concomitant]
  18. PLAVIX [Concomitant]
  19. MINOXIDIL [Concomitant]
  20. IMDUR [Concomitant]
  21. PROZAC [Concomitant]
  22. LASIX [Concomitant]
  23. KEPPRA [Concomitant]

REACTIONS (2)
  - CEREBROVASCULAR ACCIDENT [None]
  - PNEUMONIA [None]
